FAERS Safety Report 5609767-8 (Version None)
Quarter: 2008Q1

REPORT INFORMATION
  Report Type: 
  Country: None (occurrence: None)
  Receive Date: 20080131
  Receipt Date: 20071126
  Transmission Date: 20080703
  Serious: No
  Sender: FDA-Public Use
  Company Number: US-BAYER-200713920BCC

PATIENT
  Age: 46 Year
  Sex: Female
  Weight: 122 kg

DRUGS (2)
  1. ALEVE SMOOTH GEL [Suspect]
     Indication: PAIN
     Dosage: TOTAL DAILY DOSE: 220 MG  UNIT DOSE: 220 MG
     Route: 048
  2. LISINOPRIL [Concomitant]

REACTIONS (1)
  - CHILLS [None]
